FAERS Safety Report 4691338-1 (Version None)
Quarter: 2005Q2

REPORT INFORMATION
  Report Type: 
  Country: None (occurrence: None)
  Receive Date: 20050615
  Receipt Date: 20050610
  Transmission Date: 20051028
  Serious: Yes (Other)
  Sender: FDA-Public Use
  Company Number: IN-MERCK-0506USA01886

PATIENT
  Age: 20 Year
  Sex: Male

DRUGS (1)
  1. SINGULAIR [Suspect]
     Indication: RHINITIS ALLERGIC
     Route: 048

REACTIONS (8)
  - ABDOMINAL PAIN [None]
  - BLOOD PRESSURE INCREASED [None]
  - DUODENAL ULCER [None]
  - GASTRIC ULCER HAEMORRHAGE [None]
  - HEART RATE INCREASED [None]
  - HENOCH-SCHONLEIN PURPURA [None]
  - INTESTINAL OBSTRUCTION [None]
  - LEUKOCYTOCLASTIC VASCULITIS [None]
